FAERS Safety Report 5152338-0 (Version None)
Quarter: 2006Q4

REPORT INFORMATION
  Report Type: 
  Country: None (occurrence: None)
  Receive Date: 20061116
  Receipt Date: 20030513
  Transmission Date: 20070319
  Serious: Yes (Life-Threatening, Hospitalization)
  Sender: FDA-Public Use
  Company Number: 2003AP01887

PATIENT
  Age: 48 Year
  Sex: Male

DRUGS (8)
  1. METOPROLOL TARTRATE [Suspect]
  2. PROPOXYPHENE NAPSYLATE W/ ACETAMINOPHEN [Interacting]
     Indication: UMBILICAL HERNIA REPAIR
     Dosage: 200 MG OF PROPOXYPHENE NAPSYLATE WITH 1300 MG ACETAMINOPHEN
  3. DILTIAZEM HCL [Concomitant]
     Indication: HEART RATE
     Dosage: SUSTAINED RELEASE
  4. ATORVASTATIN CALCIUM [Concomitant]
     Indication: HYPERLIPIDAEMIA
  5. LEVOTHYROXINE SODIUM [Concomitant]
     Indication: HYPOTHYROIDISM
  6. FOSINOPRIL SODIUM [Concomitant]
     Indication: HYPERTENSION
  7. AMITRIPTYLINE HCL [Concomitant]
     Indication: SLEEP DISORDER
  8. WARFARIN SODIUM [Concomitant]

REACTIONS (3)
  - BRADYCARDIA [None]
  - DRUG INTERACTION [None]
  - HYPOTENSION [None]
